FAERS Safety Report 18667199 (Version 1)
Quarter: 2020Q4

REPORT INFORMATION
  Report Type: Spontaneous
  Country: JP (occurrence: JP)
  Receive Date: 20201228
  Receipt Date: 20201228
  Transmission Date: 20210114
  Serious: Yes (Death, Other)
  Sender: FDA-Public Use
  Company Number: JP-LUPIN PHARMACEUTICALS INC.-2020-10960

PATIENT
  Sex: Male

DRUGS (9)
  1. CAFFEINE. [Interacting]
     Active Substance: CAFFEINE
     Indication: INTENTIONAL OVERDOSE
     Dosage: 100 DOSAGE FORM
     Route: 048
  2. ESCITALOPRAM OXALATE. [Suspect]
     Active Substance: ESCITALOPRAM OXALATE
     Indication: SCHIZOPHRENIA
     Dosage: UNK
     Route: 065
  3. ESZOPICLONE. [Interacting]
     Active Substance: ESZOPICLONE
     Indication: SCHIZOPHRENIA
     Dosage: UNK
     Route: 065
  4. AKINETON [Interacting]
     Active Substance: BIPERIDEN HYDROCHLORIDE
     Indication: SCHIZOPHRENIA
     Dosage: UNK
     Route: 065
  5. OLANZAPINE. [Interacting]
     Active Substance: OLANZAPINE
     Indication: SCHIZOPHRENIA
     Dosage: UNK
     Route: 065
  6. FLUNITRAZEPAM [Interacting]
     Active Substance: FLUNITRAZEPAM
     Indication: SCHIZOPHRENIA
     Dosage: UNK
     Route: 065
  7. ARIPIPRAZOLE. [Interacting]
     Active Substance: ARIPIPRAZOLE
     Indication: SCHIZOPHRENIA
     Dosage: UNK
     Route: 065
  8. RISPERIDONE. [Interacting]
     Active Substance: RISPERIDONE
     Indication: SCHIZOPHRENIA
     Dosage: UNK
     Route: 065
  9. CERCINE [Interacting]
     Active Substance: DIAZEPAM
     Indication: SCHIZOPHRENIA
     Dosage: UNK
     Route: 065

REACTIONS (13)
  - Drug interaction [Fatal]
  - Pulse absent [Fatal]
  - Ventricular fibrillation [Fatal]
  - Circulatory collapse [Fatal]
  - Completed suicide [Fatal]
  - Loss of consciousness [Fatal]
  - Cardiac arrest [Fatal]
  - Pain [Fatal]
  - Toxicity to various agents [Fatal]
  - Apnoea [Fatal]
  - Gait disturbance [Fatal]
  - Malaise [Fatal]
  - Vomiting [Fatal]
